FAERS Safety Report 9546627 (Version 2)
Quarter: 2013Q3

REPORT INFORMATION
  Report Type: Spontaneous
  Country: US (occurrence: US)
  Receive Date: 20130924
  Receipt Date: 20130924
  Transmission Date: 20140515
  Serious: Yes (Other)
  Sender: FDA-Public Use
  Company Number: US-AMGEN-USASP2013049689

PATIENT
  Age: 82 Year
  Sex: Female

DRUGS (6)
  1. PROLIA [Suspect]
     Indication: OSTEOPOROSIS
     Dosage: UNK
     Route: 065
     Dates: start: 20130615
  2. CALCIUM [Concomitant]
  3. VITAMIN D                          /00107901/ [Concomitant]
     Dosage: 2000 IU, QD
  4. NORVASC [Concomitant]
  5. LISINOPRIL [Concomitant]
  6. LEVOTHYROXIN [Concomitant]

REACTIONS (7)
  - Intervertebral disc space narrowing [Recovering/Resolving]
  - Back disorder [Recovering/Resolving]
  - Paraesthesia oral [Not Recovered/Not Resolved]
  - Paraesthesia [Not Recovered/Not Resolved]
  - Nerve compression [Recovering/Resolving]
  - Mobility decreased [Unknown]
  - Pain [Unknown]
